FAERS Safety Report 6399152-6 (Version None)
Quarter: 2009Q4

REPORT INFORMATION
  Report Type: 
  Country: None (occurrence: None)
  Receive Date: 20091013
  Receipt Date: 20090324
  Transmission Date: 20100525
  Serious: Yes (Hospitalization)
  Sender: FDA-Public Use
  Company Number: JP-GENENTECH-280339

PATIENT
  Sex: Male
  Weight: 50 kg

DRUGS (4)
  1. AVASTIN [Suspect]
     Indication: COLON CANCER
     Dosage: 5 MG/KG, X1
     Route: 041
     Dates: start: 20090130, end: 20090130
  2. ELPLAT [Suspect]
     Indication: COLON CANCER
     Dosage: 125 G, UNK
     Route: 041
     Dates: start: 20080714, end: 20090130
  3. FLUOROURACIL [Suspect]
     Indication: COLON CANCER
     Dosage: 600 MG, UNK
     Route: 041
     Dates: start: 20080714, end: 20090130
  4. CALCIUM LEVOFOLINATE [Suspect]
     Indication: COLON CANCER
     Dosage: 300 MG, UNK
     Route: 041
     Dates: start: 20090714

REACTIONS (2)
  - INTERSTITIAL LUNG DISEASE [None]
  - LYMPHOCYTE STIMULATION TEST POSITIVE [None]
